FAERS Safety Report 4689466-X (Version None)
Quarter: 2005Q2

REPORT INFORMATION
  Report Type: 
  Country: None (occurrence: None)
  Receive Date: 20050311
  Receipt Date: 20050311
  Transmission Date: 20051028
  Serious: No
  Sender: FDA-Public Use
  Company Number: None

PATIENT
  Sex: Female

DRUGS (2)
  1. PROZAC [Suspect]
     Indication: ANXIETY
     Dosage: 20 MG @ QD ORAL
     Route: 048
  2. PROZAC [Suspect]
     Indication: DEPRESSION
     Dosage: 20 MG @ QD ORAL
     Route: 048

REACTIONS (3)
  - AFFECT LABILITY [None]
  - PHARMACEUTICAL PRODUCT COMPLAINT [None]
  - TREMOR [None]
